FAERS Safety Report 4649364-4 (Version None)
Quarter: 2005Q2

REPORT INFORMATION
  Report Type: 
  Country: None (occurrence: None)
  Receive Date: 20050502
  Receipt Date: 20050420
  Transmission Date: 20051028
  Serious: Yes (Other)
  Sender: FDA-Public Use
  Company Number: US-JNJFOC-20050405259

PATIENT
  Sex: Male
  Weight: 54.43 kg

DRUGS (7)
  1. REMICADE [Suspect]
     Indication: RHEUMATOID ARTHRITIS
     Dosage: PATIENT RECEIVED INFUSIONS FOR APPROXIMATELY 3-4 YEARS.
     Route: 042
  2. AMBIEN [Concomitant]
  3. METHOTREXATE [Concomitant]
  4. CELEBREX [Concomitant]
  5. PREDNISONE TAB [Concomitant]
  6. PRINOVIL [Concomitant]
  7. VITAMINS [Concomitant]

REACTIONS (1)
  - INTERVERTEBRAL DISC DEGENERATION [None]
